FAERS Safety Report 20825820 (Version 3)
Quarter: 2022Q4

REPORT INFORMATION
  Report Type: Report from Study
  Country: US (occurrence: US)
  Receive Date: 20220513
  Receipt Date: 20221025
  Transmission Date: 20230113
  Serious: No
  Sender: FDA-Public Use
  Company Number: US-PHARMACOVIGILANCE-US-KAD-22-00268

PATIENT
  Sex: Male

DRUGS (3)
  1. BELUMOSUDIL [Suspect]
     Active Substance: BELUMOSUDIL
     Indication: Product used for unknown indication
     Dosage: 200 MILLIGRAM, QD
     Dates: start: 20211105
  2. BELUMOSUDIL [Suspect]
     Active Substance: BELUMOSUDIL
     Dosage: 100 MILLIGRAM, QOD
     Route: 065
  3. BELUMOSUDIL [Suspect]
     Active Substance: BELUMOSUDIL
     Dosage: UNK

REACTIONS (3)
  - Dizziness [Recovering/Resolving]
  - Balance disorder [Recovering/Resolving]
  - Somnolence [Recovering/Resolving]
